FAERS Safety Report 4811538-7 (Version None)
Quarter: 2005Q4

REPORT INFORMATION
  Report Type: 
  Country: None (occurrence: None)
  Receive Date: 20051025
  Receipt Date: 20051005
  Transmission Date: 20060501
  Serious: Yes (Death)
  Sender: FDA-Public Use
  Company Number: 2005VX000564

PATIENT
  Age: 1 Day
  Sex: Male
  Weight: 2.9 kg

DRUGS (1)
  1. PROSTIGMIN INJECTION (NEOSTIGMINE METILSULFATE) [Suspect]
     Indication: PULMONARY VALVE STENOSIS
     Dosage: 50 UG; INTRAVENOUS
     Route: 042
     Dates: start: 20050827, end: 20050827

REACTIONS (7)
  - BLOOD PRESSURE DECREASED [None]
  - CARDIOMYOPATHY [None]
  - DIALYSIS [None]
  - METABOLIC ACIDOSIS [None]
  - MULTI-ORGAN FAILURE [None]
  - NEONATAL DISORDER [None]
  - WRONG DRUG ADMINISTERED [None]
